FAERS Safety Report 17465159 (Version 1)
Quarter: 2020Q1

REPORT INFORMATION
  Report Type: Spontaneous
  Country: US (occurrence: US)
  Receive Date: 20200227
  Receipt Date: 20200227
  Transmission Date: 20200409
  Serious: Yes (Hospitalization)
  Sender: FDA-Public Use
  Company Number: US-ABBVIE-20K-163-3292305-00

PATIENT
  Age: 60 Year
  Sex: Male
  Weight: 74.91 kg

DRUGS (1)
  1. IMBRUVICA [Suspect]
     Active Substance: IBRUTINIB
     Indication: WALDENSTROM^S MACROGLOBULINAEMIA
     Route: 048
     Dates: start: 2018

REACTIONS (2)
  - Headache [Not Recovered/Not Resolved]
  - Central venous catheter removal [Unknown]

NARRATIVE: CASE EVENT DATE: 20200221
